FAERS Safety Report 7928633-6 (Version None)
Quarter: 2011Q4

REPORT INFORMATION
  Report Type: 
  Country: None (occurrence: None)
  Receive Date: 20111118
  Receipt Date: 20111117
  Transmission Date: 20120403
  Serious: Yes (Other)
  Sender: FDA-Public Use
  Company Number: US-CEPHALON-2011005029

PATIENT
  Sex: Male
  Weight: 72 kg

DRUGS (7)
  1. TREANDA [Suspect]
     Indication: CHRONIC LYMPHOCYTIC LEUKAEMIA
     Route: 042
     Dates: start: 20110509
  2. FLOMAX [Concomitant]
  3. ACETAMINOPHEN [Concomitant]
  4. RITUXAN [Concomitant]
     Indication: CHRONIC LYMPHOCYTIC LEUKAEMIA
     Route: 042
     Dates: start: 20110509
  5. METOPROLOL TARTRATE [Concomitant]
  6. TRIAMTERENE AND HYDROCHLOROTHIAZIDE [Concomitant]
  7. ASPIRIN [Concomitant]

REACTIONS (4)
  - PLATELET COUNT DECREASED [None]
  - HYPERSENSITIVITY [None]
  - BLISTER [None]
  - RASH [None]
